FAERS Safety Report 7617644-6 (Version None)
Quarter: 2011Q3

REPORT INFORMATION
  Report Type: 
  Country: None (occurrence: None)
  Receive Date: 20110718
  Receipt Date: 20110707
  Transmission Date: 20111222
  Serious: Yes (Hospitalization)
  Sender: FDA-Public Use
  Company Number: FR-AMGEN-FRASP2011031519

PATIENT
  Sex: Male
  Weight: 70 kg

DRUGS (7)
  1. ZOPHREN                            /00955301/ [Concomitant]
  2. APREPITANT [Concomitant]
  3. METHOTREXATE [Concomitant]
  4. NEULASTA [Suspect]
     Indication: CHEMOTHERAPY
     Dosage: UNK
     Route: 058
     Dates: start: 20110616, end: 20110616
  5. DOXORUBICIN HCL [Concomitant]
  6. CISPLATIN [Concomitant]
  7. VINBLASTINE SULFATE [Concomitant]

REACTIONS (4)
  - URTICARIA [None]
  - RASH [None]
  - MALAISE [None]
  - HYPERSENSITIVITY [None]
